FAERS Safety Report 6031034-1 (Version None)
Quarter: 2009Q1

REPORT INFORMATION
  Report Type: 
  Country: None (occurrence: None)
  Receive Date: 20090108
  Receipt Date: 20090105
  Transmission Date: 20090719
  Serious: No
  Sender: FDA-Public Use
  Company Number: US-JNJFOC-20090100754

PATIENT
  Sex: Female
  Weight: 108.86 kg

DRUGS (6)
  1. DURAGESIC-100 [Suspect]
     Indication: BACK PAIN
     Route: 062
  2. OPANA [Concomitant]
     Indication: BACK PAIN
     Route: 048
  3. ZANAFLEX [Concomitant]
     Indication: BACK PAIN
     Route: 048
  4. VOLTAREN [Concomitant]
     Indication: BACK PAIN
     Route: 048
  5. TEMAZEPAM [Concomitant]
     Indication: SLEEP DISORDER
     Route: 048
  6. LOTENSIN [Concomitant]
     Indication: BLOOD PRESSURE
     Route: 048

REACTIONS (1)
  - WRONG TECHNIQUE IN DRUG USAGE PROCESS [None]
